FAERS Safety Report 8133539-6 (Version None)
Quarter: 2012Q1

REPORT INFORMATION
  Report Type: 
  Country: None (occurrence: None)
  Receive Date: 20120213
  Receipt Date: 20120210
  Transmission Date: 20120608
  Serious: Yes (Life-Threatening)
  Sender: FDA-Public Use
  Company Number: PHHY2012IT011254

PATIENT
  Sex: Female

DRUGS (11)
  1. PACLITAXEL [Suspect]
     Indication: BREAST CANCER
     Dosage: 360 MG, UNK
     Route: 042
     Dates: start: 20120104
  2. LEVOTHYROXINE SODIUM [Concomitant]
     Indication: AUTOIMMUNE THYROIDITIS
     Dosage: 50 UG, UNK
     Route: 048
  3. MINERAL TAB [Concomitant]
  4. PACLITAXEL [Suspect]
     Dosage: 360 MG, UNK
     Route: 042
     Dates: start: 20120125, end: 20120125
  5. ONDANSETRON [Concomitant]
     Dosage: 8 MG, UNK
     Route: 042
  6. DOXORUBICIN HCL [Concomitant]
     Dosage: 115 MG, UNK
     Route: 042
     Dates: start: 20120104, end: 20120125
  7. RANIDIL [Concomitant]
     Dosage: 50 MG, UNK
  8. MULTI-VITAMINS [Concomitant]
  9. ALOE [Concomitant]
  10. TRIMETON [Concomitant]
     Dosage: 10 MG, UNK
     Route: 030
  11. SOLU-CORTEF [Concomitant]
     Dosage: 250 MG, UNK

REACTIONS (6)
  - FEELING HOT [None]
  - AGITATION [None]
  - DYSPNOEA [None]
  - HEART RATE DECREASED [None]
  - BACK PAIN [None]
  - LOSS OF CONSCIOUSNESS [None]
